FAERS Safety Report 7482809-3 (Version None)
Quarter: 2011Q2

REPORT INFORMATION
  Report Type: 
  Country: None (occurrence: None)
  Receive Date: 20110516
  Receipt Date: 20110504
  Transmission Date: 20111010
  Serious: Yes (Hospitalization)
  Sender: FDA-Public Use
  Company Number: GB-WATSON-2011-06550

PATIENT
  Age: 63 Year
  Sex: Female

DRUGS (3)
  1. SODIUM CHLORIDE [Suspect]
     Indication: SUPPLEMENTATION THERAPY
     Dosage: 250 MMOL, DAILY
     Route: 042
  2. SOLUTIONS FOR PARENTERAL NUTRITION [Suspect]
     Indication: INTESTINAL RESECTION
  3. OMEPRAZOLE [Suspect]
     Indication: PRODUCT USED FOR UNKNOWN INDICATION
     Dosage: UNK MG, DAILY

REACTIONS (7)
  - HYPERVENTILATION [None]
  - BLOOD BICARBONATE DECREASED [None]
  - HYPERCHLORAEMIA [None]
  - BLOOD SODIUM DECREASED [None]
  - TRACHEAL OBSTRUCTION [None]
  - INCREASED VISCOSITY OF BRONCHIAL SECRETION [None]
  - ACIDOSIS HYPERCHLORAEMIC [None]
